FAERS Safety Report 4943235-1 (Version None)
Quarter: 2006Q1

REPORT INFORMATION
  Report Type: 
  Country: None (occurrence: None)
  Receive Date: 20060314
  Receipt Date: 20051115
  Transmission Date: 20060701
  Serious: Yes (Other)
  Sender: FDA-Public Use
  Company Number: DE-ROCHE-424819

PATIENT
  Age: 40 Year
  Sex: Male

DRUGS (1)
  1. LARIAM [Suspect]
     Indication: MALARIA PROPHYLAXIS
     Route: 048

REACTIONS (5)
  - ANXIETY [None]
  - CONFUSIONAL STATE [None]
  - DELUSION [None]
  - PERSECUTORY DELUSION [None]
  - PSYCHOTIC DISORDER [None]
